FAERS Safety Report 17946364 (Version 1)
Quarter: 2020Q2

REPORT INFORMATION
  Report Type: Spontaneous
  Country: IT (occurrence: IT)
  Receive Date: 20200625
  Receipt Date: 20200625
  Transmission Date: 20200714
  Serious: Yes (Other)
  Sender: FDA-Public Use
  Company Number: IT-BAYER-2020-127518

PATIENT
  Age: 15 Year
  Sex: Male

DRUGS (1)
  1. REGORAFENIB. [Suspect]
     Active Substance: REGORAFENIB
     Indication: OSTEOSARCOMA
     Dosage: 100 MG, QD
     Route: 048

REACTIONS (4)
  - Product use in unapproved indication [None]
  - Off label use [None]
  - Pneumothorax [None]
  - Drug effective for unapproved indication [None]
